FAERS Safety Report 25728503 (Version 1)
Quarter: 2025Q3

REPORT INFORMATION
  Report Type: Report from Study
  Country: US (occurrence: US)
  Receive Date: 20250826
  Receipt Date: 20250826
  Transmission Date: 20251020
  Serious: Yes (Other)
  Sender: ABBVIE
  Company Number: US-ABBVIE-6424208

PATIENT
  Age: 51 Year
  Sex: Female

DRUGS (1)
  1. SKYRIZI [Suspect]
     Active Substance: RISANKIZUMAB-RZAA
     Indication: Psoriasis
     Route: 058
     Dates: start: 20250311

REACTIONS (20)
  - Stress cardiomyopathy [Recovering/Resolving]
  - Systemic lupus erythematosus [Unknown]
  - Breast cancer female [Unknown]
  - Cerebrovascular accident [Unknown]
  - Transient ischaemic attack [Unknown]
  - Type 2 diabetes mellitus [Unknown]
  - Exostosis [Unknown]
  - Osteopenia [Unknown]
  - Tendonitis [Unknown]
  - Bipolar disorder [Unknown]
  - Borderline personality disorder [Unknown]
  - Generalised anxiety disorder [Unknown]
  - Post-traumatic stress disorder [Unknown]
  - Sleep apnoea syndrome [Unknown]
  - Hypotonia [Unknown]
  - Pruritus [Not Recovered/Not Resolved]
  - Myocardial infarction [Unknown]
  - Spinal osteoarthritis [Unknown]
  - Insomnia [Unknown]
  - Spinal fracture [Unknown]

NARRATIVE: CASE EVENT DATE: 20250101
